FAERS Safety Report 13573922 (Version 1)
Quarter: 2017Q2

REPORT INFORMATION
  Report Type: Spontaneous
  Country: JP (occurrence: JP)
  Receive Date: 20170523
  Receipt Date: 20170523
  Transmission Date: 20170830
  Serious: Yes (Hospitalization)
  Sender: FDA-Public Use
  Company Number: JP-ELI_LILLY_AND_COMPANY-JP201704007869

PATIENT
  Age: 89 Year
  Sex: Female

DRUGS (5)
  1. CYMBALTA [Suspect]
     Active Substance: DULOXETINE HYDROCHLORIDE
     Indication: BACK PAIN
     Dosage: 20 MG, QD
     Route: 048
     Dates: start: 20170321, end: 20170327
  2. ETODOLAC. [Concomitant]
     Active Substance: ETODOLAC
     Indication: BACK PAIN
     Dosage: 200 MG, BID
     Route: 048
     Dates: start: 20160304, end: 20170404
  3. ETODOLAC. [Concomitant]
     Active Substance: ETODOLAC
     Indication: LUMBAR SPINAL STENOSIS
  4. VITAMINS NOS [Concomitant]
     Active Substance: VITAMINS
     Indication: LUMBAR SPINAL STENOSIS
     Dosage: 5 UG, TID
     Route: 048
     Dates: start: 20160304, end: 20170404
  5. CYMBALTA [Suspect]
     Active Substance: DULOXETINE HYDROCHLORIDE
     Dosage: 40 MG, QD
     Route: 048
     Dates: start: 20170328, end: 20170404

REACTIONS (1)
  - Gastrooesophageal reflux disease [Recovering/Resolving]

NARRATIVE: CASE EVENT DATE: 20170328
